FAERS Safety Report 18550198 (Version 1)
Quarter: 2020Q4

REPORT INFORMATION
  Report Type: Spontaneous
  Country: US (occurrence: US)
  Receive Date: 20201126
  Receipt Date: 20201126
  Transmission Date: 20210114
  Serious: Yes (Other)
  Sender: FDA-Public Use
  Company Number: NVSC2020US309300

PATIENT
  Sex: Female

DRUGS (2)
  1. TEGRETOL [Suspect]
     Active Substance: CARBAMAZEPINE
     Indication: PRODUCT USED FOR UNKNOWN INDICATION
     Dosage: 200 MG, QID
     Route: 065
     Dates: start: 202002
  2. CLONAZEPAM. [Concomitant]
     Active Substance: CLONAZEPAM
     Indication: PRODUCT USED FOR UNKNOWN INDICATION
     Dosage: UNK
     Route: 065

REACTIONS (12)
  - Ill-defined disorder [Unknown]
  - Product dispensing error [Unknown]
  - Illness [Unknown]
  - Product taste abnormal [Unknown]
  - Hypoaesthesia [Unknown]
  - Product quality issue [Unknown]
  - Abdominal distension [Unknown]
  - Neurological symptom [Unknown]
  - Visual impairment [Unknown]
  - Nightmare [Unknown]
  - Hallucination [Unknown]
  - Headache [Unknown]
